FAERS Safety Report 9106779 (Version 1)
Quarter: 2013Q1

REPORT INFORMATION
  Report Type: Spontaneous
  Country: ES (occurrence: ES)
  Receive Date: 20130221
  Receipt Date: 20130221
  Transmission Date: 20140127
  Serious: Yes (Hospitalization)
  Sender: FDA-Public Use
  Company Number: ES-JNJFOC-20130206818

PATIENT
  Age: 70 None
  Sex: Female

DRUGS (15)
  1. XARELTO [Suspect]
     Indication: CEREBROVASCULAR ACCIDENT PROPHYLAXIS
     Route: 048
     Dates: start: 2011
  2. XARELTO [Suspect]
     Indication: ATRIAL FIBRILLATION
     Route: 048
     Dates: start: 2011
  3. INSULINE NOVOMIX [Concomitant]
     Route: 065
  4. KARVEA [Concomitant]
     Route: 048
  5. BISOPROLOL [Concomitant]
     Route: 048
  6. TARDYFERON [Concomitant]
     Route: 065
  7. ANAGASTRA [Concomitant]
     Route: 048
  8. SEGURIL [Concomitant]
     Route: 048
  9. NOCTAMID [Concomitant]
     Route: 065
  10. DIGOXINE [Concomitant]
     Route: 065
  11. EUTIROX [Concomitant]
     Route: 048
  12. DIGOXIN [Concomitant]
     Route: 065
  13. BISOPROLOL [Concomitant]
     Route: 048
  14. CLEXANE [Concomitant]
     Route: 065
  15. NOVOMIX [Concomitant]
     Route: 065

REACTIONS (6)
  - Pleural effusion [Unknown]
  - Acute prerenal failure [Unknown]
  - Pericardial effusion [Unknown]
  - Cardiac tamponade [Unknown]
  - Cardiac failure congestive [Unknown]
  - Iron deficiency anaemia [Unknown]
